FAERS Safety Report 25806517 (Version 2)
Quarter: 2025Q3

REPORT INFORMATION
  Report Type: Report from Study
  Country: EU (occurrence: EU)
  Receive Date: 20250916
  Receipt Date: 20250924
  Transmission Date: 20251021
  Serious: Yes (Hospitalization, Other)
  Sender: BRISTOL-MYERS SQUIBB COMPANY
  Company Number: EU-BRISTOL-MYERS SQUIBB COMPANY-2025-123127

PATIENT
  Age: 73 Year
  Sex: Male

DRUGS (14)
  1. OPDIVO [Suspect]
     Active Substance: NIVOLUMAB
     Indication: Non-small cell lung cancer
     Dosage: EVERY 3 WEEKS
     Dates: start: 20230920, end: 20240417
  2. YERVOY [Suspect]
     Active Substance: IPILIMUMAB
     Indication: Non-small cell lung cancer
     Dosage: ALL 6 WEEK
     Dates: start: 20230920, end: 20240417
  3. CARBOPLATIN [Suspect]
     Active Substance: CARBOPLATIN
     Indication: Non-small cell lung cancer
     Dates: start: 20230920, end: 20231101
  4. PREDNISONE [Concomitant]
     Active Substance: PREDNISONE
     Indication: Product used for unknown indication
     Dates: start: 20240221, end: 20240226
  5. PREDNISONE [Concomitant]
     Active Substance: PREDNISONE
     Dates: start: 20240227, end: 20240304
  6. PREDNISONE [Concomitant]
     Active Substance: PREDNISONE
     Dates: start: 20240305, end: 20240719
  7. PREDNISONE [Concomitant]
     Active Substance: PREDNISONE
     Dates: start: 20240720, end: 20240803
  8. PREDNISONE [Concomitant]
     Active Substance: PREDNISONE
     Dates: start: 20240804, end: 20240818
  9. PREDNISONE [Concomitant]
     Active Substance: PREDNISONE
     Dates: start: 20240819, end: 20240905
  10. CHOLECALCIFEROL [Concomitant]
     Active Substance: CHOLECALCIFEROL
     Indication: Prophylaxis
  11. ELIQUIS [Concomitant]
     Active Substance: APIXABAN
     Indication: Product used for unknown indication
  12. LORAZEPAM [Concomitant]
     Active Substance: LORAZEPAM
     Indication: Product used for unknown indication
  13. POLYETHYLENE GLYCOLS [Concomitant]
     Active Substance: POLYETHYLENE GLYCOLS
     Indication: Prophylaxis
  14. Testosteron Depot [Concomitant]
     Indication: Product used for unknown indication

REACTIONS (2)
  - Encephalitis autoimmune [Recovered/Resolved]
  - Epilepsy [Recovered/Resolved]

NARRATIVE: CASE EVENT DATE: 20240620
